FAERS Safety Report 5571980-6 (Version None)
Quarter: 2007Q4

REPORT INFORMATION
  Report Type: 
  Country: None (occurrence: None)
  Receive Date: 20071221
  Receipt Date: 20071218
  Transmission Date: 20080405
  Serious: Yes (Other)
  Sender: FDA-Public Use
  Company Number: US-BOEHRINGER INGELHEIM PHARMACEUTICALS, INC.-2007-BP-26384BP

PATIENT
  Sex: Female

DRUGS (7)
  1. SPIRIVA [Suspect]
     Indication: CHRONIC OBSTRUCTIVE PULMONARY DISEASE
     Route: 055
     Dates: start: 20050101
  2. AMLODIPINE DESYLATE [Suspect]
  3. TUSSINEX [Suspect]
  4. LIPITOR [Concomitant]
  5. ASPIRIN [Concomitant]
  6. CIPROSLAXIN [Concomitant]
     Indication: UPPER RESPIRATORY TRACT INFECTION
  7. VERAPAMIL [Concomitant]
     Indication: CARDIAC DISORDER

REACTIONS (3)
  - ERYTHEMA [None]
  - FLUSHING [None]
  - SYNCOPE [None]
